FAERS Safety Report 8615186-2 (Version None)
Quarter: 2012Q3

REPORT INFORMATION
  Report Type: 
  Country: None (occurrence: None)
  Receive Date: 20120814
  Receipt Date: 20120814
  Transmission Date: 20120928
  Serious: Yes (Hospitalization)
  Sender: FDA-Public Use
  Company Number: None

PATIENT
  Age: 93 Year
  Sex: Male
  Weight: 55.9 kg

DRUGS (1)
  1. CARBAMAZEPINE [Suspect]
     Indication: CONVULSION
     Dosage: 20 MG TID PO
     Route: 048
     Dates: start: 19820101, end: 20110801

REACTIONS (3)
  - RASH PRURITIC [None]
  - DRUG LEVEL ABOVE THERAPEUTIC [None]
  - HYPONATRAEMIA [None]
